FAERS Safety Report 8326624-7 (Version None)
Quarter: 2012Q2

REPORT INFORMATION
  Report Type: 
  Country: None (occurrence: None)
  Receive Date: 20120501
  Receipt Date: 20120423
  Transmission Date: 20120825
  Serious: Yes (Other)
  Sender: FDA-Public Use
  Company Number: NO-PURDUE-GBR-2012-0010145

PATIENT
  Age: 11 Day
  Sex: Male

DRUGS (2)
  1. OXYCONTIN [Suspect]
     Indication: PRODUCT USED FOR UNKNOWN INDICATION
     Dosage: 10 MG, QID
     Route: 048
     Dates: start: 20120216, end: 20120227
  2. OXYCODONE HCL [Suspect]
     Indication: PRODUCT USED FOR UNKNOWN INDICATION
     Dosage: 5 MG, PRN
     Route: 063
     Dates: start: 20120216, end: 20120227

REACTIONS (5)
  - SOMNOLENCE [None]
  - EXPOSURE DURING BREAST FEEDING [None]
  - LISTLESS [None]
  - SEPSIS [None]
  - DECREASED APPETITE [None]
